FAERS Safety Report 9122571 (Version 2)
Quarter: 2013Q1

REPORT INFORMATION
  Report Type: Spontaneous
  Country: US (occurrence: None)
  Receive Date: 20130131
  Receipt Date: 20130206
  Transmission Date: 20140127
  Serious: Yes (Hospitalization)
  Sender: FDA-Public Use
  Company Number: JPI-P-029277

PATIENT
  Age: 63 Year
  Sex: Male
  Weight: 106.6 kg

DRUGS (8)
  1. XYREM (500 MILLIGRAM/MILLILITERS, SOLUTION) (SODIUM OXYBATE) [Suspect]
     Indication: SLEEP DISORDER
     Route: 048
     Dates: start: 20051018
  2. ATORVASTATIN CALCIUM (LIPITOR) [Concomitant]
  3. RIVAROXABAN (XARELTO) [Concomitant]
  4. NEBIVOLOL (BYSTOLIC) [Concomitant]
  5. OLMESARTAN MEDOXOMIL-HYDROCHLOROTHIAZIDE (BENICAR HCT) [Concomitant]
  6. NATEGLINIDE (STARLIX) [Concomitant]
  7. FISH OIL [Concomitant]
  8. MULTIVITAMIN [Concomitant]

REACTIONS (4)
  - Somnambulism [None]
  - Feeling jittery [None]
  - Procedural pain [None]
  - Arthritis [None]
